FAERS Safety Report 12497179 (Version 6)
Quarter: 2016Q3

REPORT INFORMATION
  Report Type: Spontaneous
  Country: JP (occurrence: JP)
  Receive Date: 20160624
  Receipt Date: 20160923
  Transmission Date: 20161109
  Serious: Yes (Life-Threatening, Hospitalization)
  Sender: FDA-Public Use
  Company Number: JP-B.I. PHARMACEUTICALS,INC./RIDGEFIELD-2016-BI-40572NB

PATIENT
  Age: 66 Year
  Sex: Male

DRUGS (4)
  1. DIOVAN [Suspect]
     Active Substance: VALSARTAN
     Indication: CARDIAC FAILURE CHRONIC
     Dosage: 20 MG
     Route: 065
     Dates: end: 20160517
  2. SELARA [Suspect]
     Active Substance: EPLERENONE
     Indication: CARDIAC FAILURE CHRONIC
     Dosage: 50 MG
     Route: 065
     Dates: end: 20160517
  3. PRAZAXA [Suspect]
     Active Substance: DABIGATRAN ETEXILATE MESYLATE
     Indication: ATRIAL FIBRILLATION
     Dosage: 300 MG
     Route: 065
     Dates: end: 20160517
  4. MAINTATE [Concomitant]
     Active Substance: BISOPROLOL FUMARATE
     Indication: CARDIAC FAILURE CHRONIC
     Dosage: 5 MG
     Route: 065
     Dates: end: 20160517

REACTIONS (13)
  - Coagulopathy [Recovered/Resolved]
  - Fall [Recovered/Resolved]
  - Purpura [Not Recovered/Not Resolved]
  - Subarachnoid haemorrhage [Recovered/Resolved]
  - Acute kidney injury [Recovered/Resolved]
  - Metabolic acidosis [Recovered/Resolved]
  - Contusion [Recovered/Resolved]
  - Thrombocytopenia [Recovered/Resolved]
  - Haematuria [Recovered/Resolved]
  - Lower gastrointestinal haemorrhage [Recovered/Resolved]
  - Dehydration [Recovered/Resolved]
  - Hyperkalaemia [Recovered/Resolved]
  - Anaemia [Not Recovered/Not Resolved]

NARRATIVE: CASE EVENT DATE: 20160510
